FAERS Safety Report 8833271 (Version 2)
Quarter: 2012Q4

REPORT INFORMATION
  Report Type: Report from Study
  Country: US (occurrence: US)
  Receive Date: 20121010
  Receipt Date: 20121228
  Transmission Date: 20130627
  Serious: Yes (Hospitalization, Other)
  Sender: FDA-Public Use
  Company Number: US-ABBOTT-12P-163-0991166-00

PATIENT
  Sex: Male
  Weight: 104.87 kg

DRUGS (2)
  1. HUMIRA [Suspect]
     Indication: COLITIS ULCERATIVE
     Route: 058
     Dates: start: 200911
  2. HUMIRA [Suspect]
     Dates: start: 20121006

REACTIONS (3)
  - Nephrolithiasis [Unknown]
  - Tooth infection [Unknown]
  - Colitis ulcerative [Unknown]
